FAERS Safety Report 10146794 (Version 1)
Quarter: 2014Q2

REPORT INFORMATION
  Report Type: Spontaneous
  Country: IT (occurrence: None)
  Receive Date: 20140429
  Receipt Date: 20140429
  Transmission Date: 20141212
  Serious: Yes (Hospitalization, Other)
  Sender: FDA-Public Use
  Company Number: AUR-APL-2014-05075

PATIENT
  Age: 28 Year
  Sex: Female

DRUGS (2)
  1. OLANZAPINE [Suspect]
     Indication: PSYCHOTIC DISORDER
     Route: 048
     Dates: start: 20130611, end: 20130611
  2. ZYPREXA [Suspect]
     Indication: PSYCHOTIC DISORDER
     Route: 048
     Dates: start: 20130611, end: 20130611

REACTIONS (4)
  - Sinus tachycardia [None]
  - Overdose [None]
  - Self injurious behaviour [None]
  - Electrocardiogram abnormal [None]
